FAERS Safety Report 6087365-2 (Version None)
Quarter: 2009Q1

REPORT INFORMATION
  Report Type: 
  Country: None (occurrence: None)
  Receive Date: 20090223
  Receipt Date: 20090210
  Transmission Date: 20090719
  Serious: Yes (Death)
  Sender: FDA-Public Use
  Company Number: B0559711A

PATIENT
  Sex: Female

DRUGS (9)
  1. AVANDIA [Suspect]
     Dosage: 4MG PER DAY
     Route: 048
     Dates: start: 20070221
  2. HEMIGOXINE [Concomitant]
     Dosage: .125MG PER DAY
     Route: 048
  3. NISISCO [Concomitant]
     Dosage: 80MG PER DAY
     Route: 048
  4. ALDACTONE [Concomitant]
     Dosage: 50MG PER DAY
     Route: 048
  5. HYPERIUM [Concomitant]
     Dosage: 2MG PER DAY
     Route: 048
  6. ACEBUTOLOL [Concomitant]
     Dosage: 400MG PER DAY
     Route: 048
  7. TRIVASTAL [Concomitant]
     Dosage: 50MG TWICE PER DAY
     Route: 048
  8. MIANSERIN [Concomitant]
     Dosage: 30MG PER DAY
     Route: 048
  9. PREVISCAN [Concomitant]
     Dosage: 1UNIT PER DAY
     Route: 048

REACTIONS (1)
  - DEATH [None]
